FAERS Safety Report 9706854 (Version 1)
Quarter: 2013Q4

REPORT INFORMATION
  Report Type: Spontaneous
  Country: TW (occurrence: TW)
  Receive Date: 20131125
  Receipt Date: 20131125
  Transmission Date: 20140711
  Serious: Yes (Other)
  Sender: FDA-Public Use
  Company Number: TW-JNJFOC-20131110457

PATIENT
  Age: 58 Year
  Sex: Female

DRUGS (8)
  1. SIMPONI [Suspect]
     Indication: RHEUMATOID ARTHRITIS
     Route: 058
     Dates: start: 20121128
  2. VITAMIN B6 [Concomitant]
     Route: 065
  3. NEXIUM [Concomitant]
     Route: 065
  4. FOLIC ACID [Concomitant]
     Route: 065
  5. MTX [Concomitant]
     Indication: RHEUMATOID ARTHRITIS
     Route: 065
  6. ARCOXIA [Concomitant]
     Indication: RHEUMATOID ARTHRITIS
     Route: 065
  7. BARACLUDE [Concomitant]
     Indication: HEPATITIS B
     Route: 065
     Dates: start: 20110628
  8. ALUMINUM HYDROXIDE/MAGNESIUM HYDROXIDE/SIMETHICONE [Concomitant]
     Dosage: SUWELL (AL(OH))3 153 MG+MG (OH)2 200MG+SIMETHICONE.
     Route: 065

REACTIONS (1)
  - Latent tuberculosis [Not Recovered/Not Resolved]
